FAERS Safety Report 5643384-9 (Version None)
Quarter: 2008Q1

REPORT INFORMATION
  Report Type: 
  Country: None (occurrence: None)
  Receive Date: 20080226
  Receipt Date: 20080211
  Transmission Date: 20080703
  Serious: Yes (Other)
  Sender: FDA-Public Use
  Company Number: 100#08#2008-00801

PATIENT
  Age: 77 Year
  Sex: Male

DRUGS (1)
  1. WARFARIN SODIUM [Suspect]
     Indication: CARDIAC DISORDER
     Dosage: ORAL
     Route: 048

REACTIONS (8)
  - COAGULATION TIME PROLONGED [None]
  - CONJUNCTIVAL HAEMORRHAGE [None]
  - DRUG PRESCRIBING ERROR [None]
  - DYSPNOEA [None]
  - FATIGUE [None]
  - HAEMOGLOBIN DECREASED [None]
  - INTERNATIONAL NORMALISED RATIO INCREASED [None]
  - POST PROCEDURAL COMPLICATION [None]
